FAERS Safety Report 10330289 (Version 3)
Quarter: 2014Q3

REPORT INFORMATION
  Report Type: Report from Study
  Country: US (occurrence: US)
  Receive Date: 20140722
  Receipt Date: 20140729
  Transmission Date: 20150326
  Serious: Yes (Death, Hospitalization)
  Sender: FDA-Public Use
  Company Number: US-009507513-1406USA012302

PATIENT
  Age: 58 Year
  Sex: Male

DRUGS (1)
  1. MK-3475 [Suspect]
     Active Substance: PEMBROLIZUMAB
     Indication: MALIGNANT MELANOMA
     Dosage: STRENGTH 2 MG/KG, Q3W, TOTAL DAILY DOSE 2 MG/KG
     Route: 042
     Dates: start: 20140613, end: 20140613

REACTIONS (3)
  - Dehydration [Recovering/Resolving]
  - Disease progression [Fatal]
  - Anaemia [Recovering/Resolving]

NARRATIVE: CASE EVENT DATE: 20140620
